FAERS Safety Report 8804156 (Version 2)
Quarter: 2012Q4

REPORT INFORMATION
  Report Type: 
  Country: US (occurrence: US)
  Receive Date: 20120924
  Receipt Date: 20121220
  Transmission Date: 20130627
  Serious: Yes (Death, Hospitalization)
  Sender: FDA-Public Use
  Company Number: US-GILEAD-2012-0061614

PATIENT
  Sex: Male

DRUGS (14)
  1. LETAIRIS [Suspect]
     Indication: PULMONARY ARTERIAL HYPERTENSION
     Dosage: 10 mg, UNK
     Route: 048
     Dates: start: 200912, end: 201208
  2. COUMADIN                           /00014802/ [Concomitant]
  3. LASIX                              /00032601/ [Concomitant]
  4. KEPPRA [Concomitant]
  5. LORTAB                             /00607101/ [Concomitant]
  6. LOPRESSOR [Concomitant]
  7. HALDOL                             /00027401/ [Concomitant]
  8. SEROQUEL [Concomitant]
  9. CULTURELLE [Concomitant]
  10. ZITHROMAX [Concomitant]
  11. KEFLEX                             /00145501/ [Concomitant]
  12. COLACE [Concomitant]
  13. DULCOLAX                           /00064401/ [Concomitant]
  14. MVI [Concomitant]

REACTIONS (2)
  - Right ventricular failure [Fatal]
  - Behavioural and psychiatric symptoms of dementia [Unknown]
